FAERS Safety Report 10149000 (Version 1)
Quarter: 2014Q2

REPORT INFORMATION
  Report Type: Other
  Country: JP (occurrence: JP)
  Receive Date: 20140502
  Receipt Date: 20140502
  Transmission Date: 20141212
  Serious: Yes (Death)
  Sender: FDA-Public Use
  Company Number: JP-BRISTOL-MYERS SQUIBB COMPANY-20684973

PATIENT
  Age: 30 Year
  Sex: Male

DRUGS (8)
  1. ABILIFY TABS [Suspect]
     Indication: SCHIZOPHRENIA
     Route: 048
  2. OLANZAPINE [Concomitant]
  3. RISPERIDONE [Concomitant]
     Dosage: ORAL SOLUTION
  4. CEFAMEZIN [Concomitant]
  5. CHLORPROMAZINE HCL [Concomitant]
  6. PROMETHAZINE HCL [Concomitant]
  7. PHENOBARBITAL [Concomitant]
  8. OLANZAPINE [Concomitant]

REACTIONS (1)
  - Acute myocardial infarction [Fatal]
